FAERS Safety Report 12768847 (Version 1)
Quarter: 2016Q3

REPORT INFORMATION
  Report Type: Spontaneous
  Country: US (occurrence: US)
  Receive Date: 20160921
  Receipt Date: 20160921
  Transmission Date: 20161109
  Serious: No
  Sender: FDA-Public Use
  Company Number: US-JAZZ-2016-US-010282

PATIENT
  Age: 22 Year
  Sex: Female

DRUGS (25)
  1. XYREM [Suspect]
     Active Substance: SODIUM OXYBATE
     Indication: HYPERSOMNIA
     Dosage: 2.25 G, BID
     Route: 048
     Dates: start: 201601, end: 201604
  2. CLIMARA [Concomitant]
     Active Substance: ESTRADIOL
  3. HUMIRA [Concomitant]
     Active Substance: ADALIMUMAB
  4. POTASSIUM CL [Concomitant]
     Active Substance: POTASSIUM CHLORIDE
  5. PROAIR HFA [Concomitant]
     Active Substance: ALBUTEROL SULFATE
  6. MODAFINIL. [Concomitant]
     Active Substance: MODAFINIL
  7. SUDAFED [Concomitant]
     Active Substance: PSEUDOEPHEDRINE HYDROCHLORIDE
  8. DRISDOL [Concomitant]
     Active Substance: ERGOCALCIFEROL
  9. FLUTICASONE PROPIONATE. [Concomitant]
     Active Substance: FLUTICASONE PROPIONATE
  10. GUAIFENESIN. [Concomitant]
     Active Substance: GUAIFENESIN
  11. CYCLOSPORINE. [Concomitant]
     Active Substance: CYCLOSPORINE
  12. DIFFERIN [Concomitant]
     Active Substance: ADAPALENE
  13. NABUMETONE. [Concomitant]
     Active Substance: NABUMETONE
  14. CLINDAMYCIN [Concomitant]
     Active Substance: CLINDAMYCIN\CLINDAMYCIN PHOSPHATE
  15. LEVOTHYROXINE. [Concomitant]
     Active Substance: LEVOTHYROXINE
  16. XYREM [Suspect]
     Active Substance: SODIUM OXYBATE
     Dosage: 3 G, BID
     Route: 048
     Dates: start: 201604
  17. IBUPROFEN. [Concomitant]
     Active Substance: IBUPROFEN
  18. RESTASIS [Concomitant]
     Active Substance: CYCLOSPORINE
  19. LORAZEPAM. [Concomitant]
     Active Substance: LORAZEPAM
  20. WELLBUTRIN [Concomitant]
     Active Substance: BUPROPION HYDROCHLORIDE
  21. BENZOYL PEROXIDE. [Concomitant]
     Active Substance: BENZOYL PEROXIDE
  22. ESTRIOL [Concomitant]
     Active Substance: ESTRIOL
  23. MONTELUKAST SODIUM. [Concomitant]
     Active Substance: MONTELUKAST SODIUM
  24. SUCRETS [Concomitant]
     Active Substance: DYCLONINE HYDROCHLORIDE\HEXYLRESORCINOL\MENTHOL\PECTIN
  25. FERROUS SULFATE. [Concomitant]
     Active Substance: FERROUS SULFATE

REACTIONS (3)
  - Anxiety [Unknown]
  - Panic attack [Unknown]
  - Influenza [Unknown]

NARRATIVE: CASE EVENT DATE: 201601
